FAERS Safety Report 8603071-1 (Version None)
Quarter: 2012Q3

REPORT INFORMATION
  Report Type: 
  Country: None (occurrence: None)
  Receive Date: 20120817
  Receipt Date: 20120810
  Transmission Date: 20120928
  Serious: Yes (Hospitalization)
  Sender: FDA-Public Use
  Company Number: DE-ABBOTT-12P-062-0938504-00

PATIENT
  Sex: Female

DRUGS (5)
  1. PANTOPRAZOLE [Concomitant]
     Indication: PRODUCT USED FOR UNKNOWN INDICATION
  2. BISOPROLOL [Concomitant]
     Indication: PRODUCT USED FOR UNKNOWN INDICATION
     Dosage: 2.5 MG PER DAY
  3. STOMACH PROTECTING MEDICATION NOT SPECIFIED [Concomitant]
     Indication: PRODUCT USED FOR UNKNOWN INDICATION
  4. B-BLOCKER [Concomitant]
     Indication: PRODUCT USED FOR UNKNOWN INDICATION
  5. HUMIRA [Suspect]
     Indication: CROHN'S DISEASE
     Dosage: 40MG EVERY WEEK, 120MG WITHIN 2 WEEKS
     Dates: start: 20101019

REACTIONS (5)
  - SKIN BURNING SENSATION [None]
  - ECZEMA [None]
  - INTESTINAL STENOSIS [None]
  - FLUSHING [None]
  - RASH [None]
